FAERS Safety Report 4560727-8 (Version None)
Quarter: 2005Q1

REPORT INFORMATION
  Report Type: 
  Country: None (occurrence: None)
  Receive Date: 20050121
  Receipt Date: 20050106
  Transmission Date: 20050727
  Serious: Yes (Death)
  Sender: FDA-Public Use
  Company Number: 2004AP06253

PATIENT
  Age: 50 Year
  Sex: Female
  Weight: 72 kg

DRUGS (8)
  1. SEROQUEL [Suspect]
     Indication: INSOMNIA
     Dosage: 100 MG DAILY PO
     Route: 048
     Dates: start: 20041201, end: 20041201
  2. AKINETON [Suspect]
     Indication: SCHIZOPHRENIA
     Dosage: 1 MG TID PO
     Route: 048
     Dates: start: 19880601, end: 20041202
  3. HIRNAMIN [Suspect]
     Indication: SCHIZOPHRENIA
     Dosage: 50 MG TID PO
     Route: 048
     Dates: start: 19880601, end: 20041202
  4. LINTON [Suspect]
     Indication: SCHIZOPHRENIA
     Dosage: 9 MG TID PO
     Route: 048
     Dates: start: 19880601
  5. RISPERDAL [Suspect]
     Indication: SCHIZOPHRENIA
     Dosage: 2 MG TID PO
     Route: 048
     Dates: start: 19880601, end: 20041202
  6. ROHYPNOL [Suspect]
     Indication: INSOMNIA
     Dates: start: 20041130, end: 20041130
  7. VEGETAMIN B [Suspect]
     Indication: SCHIZOPHRENIA
     Dosage: 50 MG DAILY PO
     Route: 048
     Dates: start: 19880601, end: 20041201
  8. PURSENNID [Concomitant]

REACTIONS (25)
  - ABNORMAL BEHAVIOUR [None]
  - ALANINE AMINOTRANSFERASE INCREASED [None]
  - ANOXIC ENCEPHALOPATHY [None]
  - ASPARTATE AMINOTRANSFERASE INCREASED [None]
  - BACTERIA URINE IDENTIFIED [None]
  - BLOOD LACTATE DEHYDROGENASE INCREASED [None]
  - BLOOD PRESSURE DECREASED [None]
  - BRADYCARDIA [None]
  - BRAIN DEATH [None]
  - CARDIO-RESPIRATORY ARREST [None]
  - DELIRIUM [None]
  - DIABETES INSIPIDUS [None]
  - DIVERTICULITIS [None]
  - INFLAMMATION [None]
  - INSOMNIA [None]
  - LARGE INTESTINE CARCINOMA [None]
  - LOSS OF CONSCIOUSNESS [None]
  - MEMORY IMPAIRMENT [None]
  - PULMONARY ARTERY THROMBOSIS [None]
  - RENAL INFARCT [None]
  - RESPIRATORY RATE DECREASED [None]
  - RESTLESSNESS [None]
  - SHOCK [None]
  - SUPRAVENTRICULAR EXTRASYSTOLES [None]
  - VENTRICULAR FIBRILLATION [None]
